FAERS Safety Report 8277106-2 (Version None)
Quarter: 2012Q2

REPORT INFORMATION
  Report Type: 
  Country: None (occurrence: None)
  Receive Date: 20120412
  Receipt Date: 20120321
  Transmission Date: 20120825
  Serious: Yes (Hospitalization)
  Sender: FDA-Public Use
  Company Number: PA-ROCHE-1045750

PATIENT
  Sex: Female
  Weight: 59.02 kg

DRUGS (3)
  1. METHOTREXATE [Concomitant]
     Indication: RHEUMATOID ARTHRITIS
     Route: 048
  2. MABTHERA [Suspect]
     Indication: RHEUMATOID ARTHRITIS
     Route: 042
     Dates: start: 20071030
  3. MABTHERA [Suspect]
     Route: 042
     Dates: start: 20071030

REACTIONS (1)
  - GRANULOMATOUS PNEUMONITIS [None]
